FAERS Safety Report 7654149-0 (Version None)
Quarter: 2011Q3

REPORT INFORMATION
  Report Type: 
  Country: None (occurrence: None)
  Receive Date: 20110803
  Receipt Date: 20110728
  Transmission Date: 20111222
  Serious: No
  Sender: FDA-Public Use
  Company Number: US-B.I. PHARMACEUTICALS,INC./RIDGEFIELD-2011-BP-18732BP

PATIENT
  Sex: Female

DRUGS (1)
  1. MIRAPEX [Suspect]
     Indication: FIBROMYALGIA
     Dates: start: 20080901, end: 20080901

REACTIONS (4)
  - VISUAL IMPAIRMENT [None]
  - BRAIN SCAN ABNORMAL [None]
  - PANIC REACTION [None]
  - AMNESIA [None]
